FAERS Safety Report 18618239 (Version 1)
Quarter: 2020Q4

REPORT INFORMATION
  Report Type: Report from Study
  Country: GB (occurrence: GB)
  Receive Date: 20201215
  Receipt Date: 20201215
  Transmission Date: 20210114
  Serious: Yes (Other)
  Sender: FDA-Public Use
  Company Number: NVSC2020GB328911

PATIENT
  Sex: Female

DRUGS (1)
  1. OMNITROPE [Suspect]
     Active Substance: SOMATROPIN
     Indication: GROWTH HORMONE DEFICIENCY
     Dosage: 0.5 MG, QD
     Route: 065
     Dates: start: 20200904

REACTIONS (4)
  - Tooth abscess [Recovering/Resolving]
  - Swelling face [Unknown]
  - Injection site pain [Unknown]
  - Craniopharyngioma [Unknown]
